FAERS Safety Report 14138564 (Version 1)
Quarter: 2017Q4

REPORT INFORMATION
  Report Type: Spontaneous
  Country: CH (occurrence: CH)
  Receive Date: 20171027
  Receipt Date: 20171027
  Transmission Date: 20180321
  Serious: Yes (Hospitalization)
  Sender: FDA-Public Use
  Company Number: CH-BAYER-2017-201114

PATIENT
  Age: 73 Year
  Sex: Female

DRUGS (10)
  1. PROGRAF [Suspect]
     Active Substance: TACROLIMUS\TACROLIMUS ANHYDROUS
     Indication: RENAL TRANSPLANT
     Dosage: 2.5 MG, BID
     Route: 048
  2. BELOC ZOK [Concomitant]
     Active Substance: METOPROLOL SUCCINATE
     Indication: HYPERTENSIVE HEART DISEASE
     Dosage: 100 MG, BID
     Route: 048
  3. NOVORAPID [Concomitant]
     Active Substance: INSULIN ASPART
     Indication: TYPE 2 DIABETES MELLITUS
     Dosage: UNK, TID
     Route: 058
  4. ATACAND [Concomitant]
     Active Substance: CANDESARTAN CILEXETIL
     Indication: HYPERTENSIVE HEART DISEASE
     Dosage: 4 MG, BID
     Route: 048
  5. CARDURA CR [Concomitant]
     Active Substance: DOXAZOSIN MESYLATE
     Indication: HYPERTENSIVE HEART DISEASE
     Dosage: 4 MG, BID
     Route: 048
  6. ASPIRIN CARDIO 100 MG [Suspect]
     Active Substance: ASPIRIN
     Indication: HYPERTENSIVE HEART DISEASE
     Dosage: 100 MG, QD
     Route: 048
  7. LESCOL [Concomitant]
     Active Substance: FLUVASTATIN SODIUM
     Indication: DYSLIPIDAEMIA
     Dosage: 80 MG, QD
     Route: 048
  8. CELLCEPT [Suspect]
     Active Substance: MYCOPHENOLATE MOFETIL\MYCOPHENOLATE MOFETIL HYDROCHLORIDE
     Indication: RENAL TRANSPLANT
     Dosage: 1000 MG, BID
     Route: 048
  9. LEVEMIR [Concomitant]
     Active Substance: INSULIN DETEMIR
     Indication: TYPE 2 DIABETES MELLITUS
     Dosage: 16 IU IN THE ORNING AND 14 IU IN THE EVENING
     Route: 058
  10. ADALAT CC [Concomitant]
     Active Substance: NIFEDIPINE
     Indication: HYPERTENSIVE HEART DISEASE
     Dosage: 30 MG, BID
     Route: 048

REACTIONS (2)
  - Diarrhoea [Unknown]
  - Eosinophilic colitis [Unknown]

NARRATIVE: CASE EVENT DATE: 201703
